FAERS Safety Report 13827431 (Version 2)
Quarter: 2017Q3

REPORT INFORMATION
  Report Type: Report from Study
  Country: US (occurrence: US)
  Receive Date: 20170802
  Receipt Date: 20170814
  Transmission Date: 20171127
  Serious: Yes (Hospitalization)
  Sender: FDA-Public Use
  Company Number: US-GILEAD-2017-0285349

PATIENT
  Age: 74 Year
  Sex: Male

DRUGS (2)
  1. IDELALISIB [Suspect]
     Active Substance: IDELALISIB
     Indication: NON-HODGKIN^S LYMPHOMA
  2. IDELALISIB [Suspect]
     Active Substance: IDELALISIB
     Indication: CHRONIC LYMPHOCYTIC LEUKAEMIA
     Dosage: 150 MG, BID
     Route: 048
     Dates: start: 20170503, end: 20170619

REACTIONS (7)
  - Confusional state [Unknown]
  - Loss of personal independence in daily activities [Unknown]
  - Mental status changes [Unknown]
  - Incoherent [Not Recovered/Not Resolved]
  - Neutropenia [Unknown]
  - Malaise [Not Recovered/Not Resolved]
  - Tremor [Unknown]

NARRATIVE: CASE EVENT DATE: 201707
